FAERS Safety Report 6244505-X (Version None)
Quarter: 2009Q2

REPORT INFORMATION
  Report Type: 
  Country: None (occurrence: None)
  Receive Date: 20090623
  Receipt Date: 20090609
  Transmission Date: 20091009
  Serious: Yes (Life-Threatening, Hospitalization)
  Sender: FDA-Public Use
  Company Number: POMP-1000577

PATIENT
  Age: 5 Month
  Sex: Female
  Weight: 5.9 kg

DRUGS (4)
  1. MYOZYME [Suspect]
     Indication: GLYCOGEN STORAGE DISEASE TYPE II
     Dosage: 20 MG/KG, QOW, INTRAVENOUS ; 10 MG/KG, QW, INTRAVENOUS
     Route: 042
     Dates: start: 20090424
  2. DOBUTAMINE HCL [Concomitant]
  3. MILRINONE LACTATE [Concomitant]
  4. BENADRYL [Concomitant]

REACTIONS (12)
  - BLOOD PH DECREASED [None]
  - CARDIAC VALVE VEGETATION [None]
  - CARDIOGENIC SHOCK [None]
  - CYANOSIS [None]
  - DIASTOLIC DYSFUNCTION [None]
  - HAEMOGLOBIN DECREASED [None]
  - INTRACARDIAC THROMBUS [None]
  - MYOCARDIAL INFARCTION [None]
  - PCO2 DECREASED [None]
  - PLATELET COUNT INCREASED [None]
  - RASH GENERALISED [None]
  - VENTRICULAR HYPERTROPHY [None]
